FAERS Safety Report 15819070 (Version 1)
Quarter: 2019Q1

REPORT INFORMATION
  Report Type: Spontaneous
  Country: US (occurrence: US)
  Receive Date: 20190114
  Receipt Date: 20190114
  Transmission Date: 20190417
  Serious: No
  Sender: FDA-Public Use
  Company Number: US-ROCHE-2084204

PATIENT
  Sex: Male
  Weight: 39.04 kg

DRUGS (3)
  1. NUTROPIN AQ [Suspect]
     Active Substance: SOMATROPIN
     Indication: PRADER-WILLI SYNDROME
     Dosage: ALTERNATING LEGS AND ARMS ONLY ;ONGOING: NO
     Route: 058
     Dates: start: 201708, end: 2018
  2. NUTROPIN AQ [Suspect]
     Active Substance: SOMATROPIN
     Dosage: GIVEN 6 TIMES A WEEK, LEGS/ARMS ONLY-ALTERNATING ;ONGOING: NO
     Route: 058
     Dates: start: 2018, end: 201802
  3. XOLAIR [Suspect]
     Active Substance: OMALIZUMAB
     Indication: CHRONIC SPONTANEOUS URTICARIA
     Dosage: POSSIBLY ONCE EVERY FOUR WEEKS-4 DOSES TOTAL ;ONGOING: NO
     Route: 065
     Dates: start: 201712

REACTIONS (5)
  - Off label use [Unknown]
  - Intentional product use issue [Unknown]
  - Rash [Recovered/Resolved]
  - Chronic spontaneous urticaria [Unknown]
  - Allergy to chemicals [Unknown]
